FAERS Safety Report 16214082 (Version 2)
Quarter: 2020Q1

REPORT INFORMATION
  Report Type: Spontaneous
  Country: CA (occurrence: CA)
  Receive Date: 20190418
  Receipt Date: 20200129
  Transmission Date: 20200409
  Serious: Yes (Death)
  Sender: FDA-Public Use
  Company Number: CA-ELI_LILLY_AND_COMPANY-CA201904007753

PATIENT
  Age: 56 Year
  Sex: Male

DRUGS (2)
  1. BENADRYL ACRIVASTINE [Concomitant]
     Indication: PRODUCT USED FOR UNKNOWN INDICATION
  2. ERBITUX [Suspect]
     Active Substance: CETUXIMAB
     Indication: PRODUCT USED FOR UNKNOWN INDICATION
     Dosage: 400 MG/M2, 2/W
     Route: 042

REACTIONS (2)
  - Death [Fatal]
  - Off label use [Unknown]
